FAERS Safety Report 9225350 (Version 1)
Quarter: 2013Q2

REPORT INFORMATION
  Report Type: Spontaneous
  Country: US (occurrence: US)
  Receive Date: 20130411
  Receipt Date: 20130411
  Transmission Date: 20140414
  Serious: No
  Sender: FDA-Public Use
  Company Number: US-009507513-1304USA000870

PATIENT
  Age: 81 Year
  Sex: Male

DRUGS (1)
  1. TICE BCG LIVE [Suspect]
     Indication: BLADDER CANCER
     Dosage: 1 VIAL IN 50 ML
     Route: 043

REACTIONS (2)
  - Urinary incontinence [Unknown]
  - Accidental exposure to product [Unknown]
